FAERS Safety Report 6579419-9 (Version None)
Quarter: 2010Q1

REPORT INFORMATION
  Report Type: 
  Country: None (occurrence: None)
  Receive Date: 20100209
  Receipt Date: 20100209
  Transmission Date: 20100710
  Serious: Yes (Other)
  Sender: FDA-Public Use
  Company Number: None

PATIENT
  Age: 47 Year
  Sex: Female
  Weight: 62.5964 kg

DRUGS (2)
  1. ZOMIG [Suspect]
     Indication: MIGRAINE
     Dosage: 5MG 1 PER DAY NASAL
     Route: 045
  2. IMITREX [Suspect]
     Indication: MIGRAINE
     Dosage: 100 MG 1-2 PER DAY PO
     Route: 048

REACTIONS (7)
  - DIZZINESS [None]
  - DRUG WITHDRAWAL HEADACHE [None]
  - HANGOVER [None]
  - HEADACHE [None]
  - NAUSEA [None]
  - NECK PAIN [None]
  - REBOUND EFFECT [None]
